FAERS Safety Report 15525351 (Version 1)
Quarter: 2018Q4

REPORT INFORMATION
  Report Type: Spontaneous
  Country: BE (occurrence: BE)
  Receive Date: 20181018
  Receipt Date: 20181018
  Transmission Date: 20190205
  Serious: Yes (Hospitalization)
  Sender: FDA-Public Use
  Company Number: BE-ROCHE-2201616

PATIENT
  Age: 24 Year
  Sex: Female

DRUGS (2)
  1. CYMEVENE [Suspect]
     Active Substance: GANCICLOVIR
     Indication: CYTOMEGALOVIRUS INFECTION
     Dosage: EVERY 6 WEEKS FOR 15 DAYS
     Route: 042
  2. VALCYTE [Suspect]
     Active Substance: VALGANCICLOVIR HYDROCHLORIDE
     Indication: CYTOMEGALOVIRUS INFECTION
     Route: 048

REACTIONS (3)
  - Cytomegalovirus infection [Recovered/Resolved]
  - Intentional product use issue [Unknown]
  - Off label use [Unknown]
